FAERS Safety Report 5706380-9 (Version None)
Quarter: 2008Q2

REPORT INFORMATION
  Report Type: 
  Country: None (occurrence: None)
  Receive Date: 20080414
  Receipt Date: 20080404
  Transmission Date: 20081010
  Serious: Yes (Hospitalization)
  Sender: FDA-Public Use
  Company Number: 163-20785-08040486

PATIENT
  Age: 80 Year
  Sex: Male

DRUGS (1)
  1. THALOMID     (THALOMIDE) [Suspect]
     Indication: MYELODYSPLASTIC SYNDROME
     Dosage: 100 MG, ORAL
     Route: 048
     Dates: start: 20071129

REACTIONS (1)
  - RESPIRATORY FAILURE [None]
